FAERS Safety Report 5236749-0 (Version None)
Quarter: 2007Q1

REPORT INFORMATION
  Report Type: 
  Country: None (occurrence: None)
  Receive Date: 20070213
  Receipt Date: 20070131
  Transmission Date: 20070707
  Serious: Yes (Other)
  Sender: FDA-Public Use
  Company Number: PHBS2007JP02148

PATIENT
  Age: 5 Year
  Sex: Male

DRUGS (2)
  1. GRAPEFRUIT JUICE [Suspect]
  2. TEGRETOL [Suspect]
     Route: 048

REACTIONS (2)
  - DRUG INTERACTION [None]
  - EPILEPSY [None]
